FAERS Safety Report 25461732 (Version 5)
Quarter: 2025Q4

REPORT INFORMATION
  Report Type: Report from Study
  Country: GB (occurrence: GB)
  Receive Date: 20250620
  Receipt Date: 20251203
  Transmission Date: 20260118
  Serious: Yes (Hospitalization, Other)
  Sender: IPSEN BIOPHARMACEUTICALS, INC.
  Company Number: GB-IPSEN Group, Research and Development-2025-14234

PATIENT
  Sex: Female

DRUGS (1)
  1. LANREOTIDE ACETATE [Suspect]
     Active Substance: LANREOTIDE ACETATE
     Indication: Acromegaly
     Dosage: LANREOTIDE IPSEN 60MG/0.5ML SOLUTION FOR INJECTION PRE-FILLED SYRINGES (IPSEN LTD) 1 PRE-FILLED DISPOSABLE INJECTION, ROUTE DEEP SC, LOT NO. 023200, EXPIRY DATE-31-MAR-2028
     Route: 058
     Dates: start: 20250516

REACTIONS (4)
  - Myocardial infarction [Unknown]
  - Chronic obstructive pulmonary disease [Not Recovered/Not Resolved]
  - Hypoacusis [Unknown]
  - Gait disturbance [Unknown]
